FAERS Safety Report 9180927 (Version 1)
Quarter: 2013Q1

REPORT INFORMATION
  Report Type: Spontaneous
  Country: MX (occurrence: MX)
  Receive Date: 20130322
  Receipt Date: 20130322
  Transmission Date: 20140127
  Serious: Yes (Death)
  Sender: FDA-Public Use
  Company Number: PHHY2013MX027366

PATIENT
  Sex: Female

DRUGS (1)
  1. GLIVEC [Suspect]
     Indication: NEOPLASM MALIGNANT
     Dosage: 100 MG, BID
     Route: 048
     Dates: start: 201212

REACTIONS (2)
  - Respiratory arrest [Fatal]
  - Blood pressure abnormal [Unknown]
